FAERS Safety Report 5290828-0 (Version None)
Quarter: 2007Q2

REPORT INFORMATION
  Report Type: 
  Country: None (occurrence: None)
  Receive Date: 20070409
  Receipt Date: 20070328
  Transmission Date: 20071010
  Serious: Yes (Hospitalization)
  Sender: FDA-Public Use
  Company Number: FR-PFIZER INC-2007024638

PATIENT
  Age: 80 Year
  Sex: Male

DRUGS (4)
  1. CELEBREX [Suspect]
  2. PLAVIX [Interacting]
  3. DEXTROPROPOXYPHENE HYDROCHLORIDE [Concomitant]
  4. SIMVASTATIN [Concomitant]

REACTIONS (4)
  - DRUG INTERACTION [None]
  - GASTROINTESTINAL HAEMORRHAGE [None]
  - IATROGENIC INJURY [None]
  - MELAENA [None]
